FAERS Safety Report 5035783-3 (Version None)
Quarter: 2006Q2

REPORT INFORMATION
  Report Type: 
  Country: None (occurrence: None)
  Receive Date: 20060526
  Receipt Date: 20060409
  Transmission Date: 20061013
  Serious: No
  Sender: FDA-Public Use
  Company Number: FABR-11495

PATIENT
  Age: 17 Year
  Sex: Male
  Weight: 65 kg

DRUGS (5)
  1. FABRAZYME [Suspect]
     Indication: FABRY'S DISEASE
     Dosage: 7 MG Q2WKS IV
     Route: 042
  2. FABRAZYME [Suspect]
     Indication: FABRY'S DISEASE
     Dosage: 65 MG Q2WKS IV
     Route: 042
  3. FABRAZYME [Suspect]
     Indication: FABRY'S DISEASE
     Dosage: 70 MG Q2WKS IV
     Route: 042
     Dates: start: 20010101
  4. HYDROCORTISONE [Concomitant]
  5. CHLORFENIRAMINE MALEATE [Concomitant]

REACTIONS (6)
  - AGITATION [None]
  - BLOOD PRESSURE DECREASED [None]
  - DYSPNOEA [None]
  - MALAISE [None]
  - PALPITATIONS [None]
  - URTICARIA [None]
